FAERS Safety Report 6188017-0 (Version None)
Quarter: 2009Q2

REPORT INFORMATION
  Report Type: 
  Country: None (occurrence: None)
  Receive Date: 20090513
  Receipt Date: 20090504
  Transmission Date: 20091009
  Serious: Yes (Other)
  Sender: FDA-Public Use
  Company Number: PHEH2008US09309

PATIENT
  Sex: Male

DRUGS (2)
  1. AREDIA [Suspect]
     Dosage: 90MG MONTHLY
     Dates: start: 19980114, end: 20020522
  2. ZOMETA [Suspect]
     Dosage: 4MG MONTHLY
     Dates: start: 20020619, end: 20050222

REACTIONS (19)
  - ANHEDONIA [None]
  - ANXIETY [None]
  - BONE DISORDER [None]
  - DEBRIDEMENT [None]
  - DENTAL CARIES [None]
  - DISABILITY [None]
  - DYSPEPSIA [None]
  - ENDODONTIC PROCEDURE [None]
  - INFECTION [None]
  - INJURY [None]
  - LOOSE TOOTH [None]
  - OSTEONECROSIS [None]
  - PAIN [None]
  - PAIN IN JAW [None]
  - RIB FRACTURE [None]
  - STEM CELL TRANSPLANT [None]
  - TENDERNESS [None]
  - TOOTH EROSION [None]
  - TOOTH EXTRACTION [None]
